FAERS Safety Report 9313227 (Version 1)
Quarter: 2013Q2

REPORT INFORMATION
  Report Type: Spontaneous
  Country: US (occurrence: US)
  Receive Date: 20130528
  Receipt Date: 20130528
  Transmission Date: 20140414
  Serious: No
  Sender: FDA-Public Use
  Company Number: US-ABBOTT-12P-163-1015515-00

PATIENT
  Sex: Male
  Weight: 108.96 kg

DRUGS (3)
  1. ANDROGEL [Suspect]
     Indication: BLOOD TESTOSTERONE DECREASED
     Dosage: 2 PUMPS, 1 PUMP ON EACH ARM
     Dates: start: 201207, end: 201211
  2. MOBIC [Concomitant]
     Indication: PAIN
     Dates: start: 201205
  3. MOBIC [Concomitant]
     Indication: INFLAMMATION

REACTIONS (1)
  - Prostatic specific antigen increased [Not Recovered/Not Resolved]
